FAERS Safety Report 8002662-9 (Version None)
Quarter: 2011Q4

REPORT INFORMATION
  Report Type: 
  Country: None (occurrence: None)
  Receive Date: 20111220
  Receipt Date: 20111205
  Transmission Date: 20120403
  Serious: Yes (Hospitalization)
  Sender: FDA-Public Use
  Company Number: FK201102863

PATIENT
  Age: 60 Year
  Sex: Male
  Weight: 128.7 kg

DRUGS (3)
  1. ETOPOSIDE [Suspect]
     Indication: NON-HODGKIN'S LYMPHOMA
     Dosage: 40 MG/M2, DAILY FOR 4 DAYS, INTRAVENOUS
     Route: 042
     Dates: start: 20110801, end: 20110804
  2. DEXAMETHASONE SODIUM PHOSPHATE [Suspect]
     Indication: CHRONIC LYMPHOCYTIC LEUKAEMIA
     Dosage: INTRAVENOUS
     Route: 042
     Dates: start: 20090707, end: 20110805
  3. CISPLATIN [Suspect]
     Indication: NON-HODGKIN'S LYMPHOMA
     Dosage: 200 MG, DAILY, INTRAVENOUS
     Route: 042
     Dates: start: 20110801, end: 20110802

REACTIONS (1)
  - RENAL FAILURE ACUTE [None]
